FAERS Safety Report 7074539-7 (Version None)
Quarter: 2010Q4

REPORT INFORMATION
  Report Type: 
  Country: None (occurrence: None)
  Receive Date: 20101029
  Receipt Date: 20101018
  Transmission Date: 20110411
  Serious: Yes (Death, Hospitalization)
  Sender: FDA-Public Use
  Company Number: US-JNJFOC-20100902861

PATIENT
  Sex: Female
  Weight: 64.41 kg

DRUGS (6)
  1. ACETAMINOPHEN [Suspect]
     Route: 048
  2. ACETAMINOPHEN [Suspect]
     Indication: PRODUCT USED FOR UNKNOWN INDICATION
     Route: 048
  3. TYLENOL PM [Suspect]
     Indication: INSOMNIA
     Route: 048
  4. ELAVIL [Concomitant]
  5. EFFEXOR [Concomitant]
  6. DOXYLAMINE [Concomitant]
     Indication: INSOMNIA

REACTIONS (12)
  - ACUTE HEPATIC FAILURE [None]
  - APNOEA [None]
  - BRAIN HERNIATION [None]
  - CONTINUOUS HAEMODIAFILTRATION [None]
  - DRUG TOXICITY [None]
  - HAEMATOCHEZIA [None]
  - HEPATIC ENCEPHALOPATHY [None]
  - HYPOGLYCAEMIA [None]
  - MULTI-ORGAN FAILURE [None]
  - RENAL FAILURE ACUTE [None]
  - TACHYCARDIA [None]
  - TOXIC SHOCK SYNDROME [None]
